FAERS Safety Report 5365787-2 (Version None)
Quarter: 2007Q2

REPORT INFORMATION
  Report Type: 
  Country: None (occurrence: None)
  Receive Date: 20070611
  Receipt Date: 20070216
  Transmission Date: 20071010
  Serious: Yes (Hospitalization, Other)
  Sender: FDA-Public Use
  Company Number: USA-2007-0026529

PATIENT
  Age: 2 Year
  Sex: Male

DRUGS (1)
  1. OXYCODONE HCL [Suspect]
     Indication: ACCIDENTAL EXPOSURE
     Dates: start: 20061007

REACTIONS (2)
  - ACCIDENTAL EXPOSURE [None]
  - RESPIRATORY ARREST [None]
